FAERS Safety Report 23968977 (Version 1)
Quarter: 2024Q2

REPORT INFORMATION
  Report Type: Spontaneous
  Country: DE (occurrence: DE)
  Receive Date: 20240612
  Receipt Date: 20240612
  Transmission Date: 20240716
  Serious: Yes (Other)
  Sender: FDA-Public Use
  Company Number: None

PATIENT
  Age: 78 Year
  Sex: Male
  Weight: 64 kg

DRUGS (13)
  1. RAMIPRIL [Suspect]
     Active Substance: RAMIPRIL
     Indication: Hypertension
     Route: 048
  2. RAMIPRIL [Suspect]
     Active Substance: RAMIPRIL
     Route: 048
  3. XELODA [Suspect]
     Active Substance: CAPECITABINE
     Indication: Colon cancer metastatic
     Dosage: WAS RECEIVED FROM DAY 1 UNTIL DAY 14 OF A CYCLE, LAST INTAKE WAS ON 11 MAY 2009
     Route: 048
     Dates: start: 20090224
  4. XELODA [Suspect]
     Active Substance: CAPECITABINE
     Dosage: 245
     Route: 048
  5. XELODA [Suspect]
     Active Substance: CAPECITABINE
     Dosage: 3700 MG?WAS RECEIVED FROM DAY 1 UNTIL DAY 14 OF A CYCLE, LAST INTAKE WAS ON 11 MAY 2009?245
     Route: 048
  6. AVASTIN [Suspect]
     Active Substance: BEVACIZUMAB
     Indication: Colon cancer metastatic
     Route: 042
  7. AVASTIN [Suspect]
     Active Substance: BEVACIZUMAB
     Route: 042
     Dates: start: 20090428, end: 20090428
  8. AVASTIN [Suspect]
     Active Substance: BEVACIZUMAB
     Dosage: PATIENT RECEIVED A TOTAL OF 3 APPLICATIONS, ON DAY 1 OF A CYCLE RESPECTIVLY?230
     Route: 042
     Dates: start: 20090224, end: 20090428
  9. AVASTIN [Suspect]
     Active Substance: BEVACIZUMAB
     Dosage: 230
     Route: 042
     Dates: start: 20090428, end: 20090428
  10. ASPIRIN [Concomitant]
     Active Substance: ASPIRIN
     Indication: Product used for unknown indication
     Route: 048
  11. ASPIRIN [Concomitant]
     Active Substance: ASPIRIN
     Route: 048
  12. ALIZAPRIDE HYDROCHLORIDE [Concomitant]
     Active Substance: ALIZAPRIDE HYDROCHLORIDE
     Indication: Prophylaxis
     Route: 048
  13. ALIZAPRIDE HYDROCHLORIDE [Concomitant]
     Active Substance: ALIZAPRIDE HYDROCHLORIDE
     Route: 048

REACTIONS (3)
  - Nephrotic syndrome [Not Recovered/Not Resolved]
  - Renal impairment [Unknown]
  - Proteinuria [Unknown]

NARRATIVE: CASE EVENT DATE: 20090519
